FAERS Safety Report 23747636 (Version 1)
Quarter: 2024Q2

REPORT INFORMATION
  Report Type: Spontaneous
  Country: US (occurrence: US)
  Receive Date: 20240416
  Receipt Date: 20240416
  Transmission Date: 20240716
  Serious: Yes (Other)
  Sender: FDA-Public Use
  Company Number: US-BAYER-2024A054965

PATIENT
  Age: 62 Year
  Sex: Female

DRUGS (3)
  1. CLARITIN-D 12 HOUR [Suspect]
     Active Substance: LORATADINE\PSEUDOEPHEDRINE SULFATE
     Indication: Neuralgia
     Dosage: 1 DF
     Route: 048
  2. NEURONTIN [Suspect]
     Active Substance: GABAPENTIN
     Route: 065
  3. HUMULIN 70/30 [Concomitant]
     Active Substance: INSULIN HUMAN

REACTIONS (4)
  - Delirium [None]
  - Somnolence [Unknown]
  - Logorrhoea [Unknown]
  - Drug effective for unapproved indication [Unknown]
